FAERS Safety Report 4988625-6 (Version None)
Quarter: 2006Q2

REPORT INFORMATION
  Report Type: 
  Country: None (occurrence: None)
  Receive Date: 20060502
  Receipt Date: 20060215
  Transmission Date: 20061013
  Serious: Yes (Other)
  Sender: FDA-Public Use
  Company Number: JP-ROCHE-439286

PATIENT
  Age: 14 Year
  Sex: Male

DRUGS (3)
  1. TAMIFLU [Suspect]
     Indication: INFLUENZA
     Route: 048
     Dates: start: 20060112, end: 20060115
  2. MITAZYME [Concomitant]
     Route: 048
     Dates: start: 20060112
  3. SP [Concomitant]
     Dosage: FORM REPORTED AS LOZENGE.
     Route: 048
     Dates: start: 20060112

REACTIONS (5)
  - CONVULSION [None]
  - DEPRESSED LEVEL OF CONSCIOUSNESS [None]
  - DIZZINESS [None]
  - HEADACHE [None]
  - NAUSEA [None]
